FAERS Safety Report 7052200-2 (Version None)
Quarter: 2010Q4

REPORT INFORMATION
  Report Type: 
  Country: None (occurrence: None)
  Receive Date: 20101013
  Receipt Date: 20101006
  Transmission Date: 20110411
  Serious: Yes (Death)
  Sender: FDA-Public Use
  Company Number: 1000015837

PATIENT
  Age: 85 Year
  Sex: Male
  Weight: 80 kg

DRUGS (13)
  1. MEMANTINE HCL [Suspect]
     Indication: DEMENTIA ALZHEIMER'S TYPE
     Dosage: ORAL
     Route: 048
     Dates: start: 20040501, end: 20051001
  2. DONEPEZIL (DONEPEZIL) (TABLETS) (DONEPEZIL) [Concomitant]
  3. TIAPRID (TIAPRIDE HYDROCHLORIDE) (TABLETS) (TIAPRIDE HYDROCHLORIDE) [Concomitant]
  4. AKTIFERRIN (AKTIFERRIN) (AKTIFERRIN) [Concomitant]
  5. DIGOXIN [Concomitant]
  6. ISO-MAK RET (ISOSORBIDE DINITRATE) (ISOSORBIDE DINITRATE) [Concomitant]
  7. SECTRAL (ACEBUTOLOL HYDROCHLORIDE) (ACEBUTOLOL HYDROCHLORIDE) [Concomitant]
  8. LACIPIL (LACIDIPINE) (LACIDIPINE) [Concomitant]
  9. FURON (FUROSEMIDE) (FUROSEMIDE) [Concomitant]
  10. KCI (POTASSIUM CHLORIDE) (POTASSIUM CHLORIDE) [Concomitant]
  11. ALUDROX (ALUMINUM HYDROXIDE) (ALUMINUM HYDROXIDE) [Concomitant]
  12. QUAMATEL (FAMOTIDINE (FAMOTIDINE) [Concomitant]
  13. DUPHALAC SYRUP (LACTULOSE) (LACTULOSE) [Concomitant]

REACTIONS (5)
  - BRONCHOPNEUMONIA [None]
  - DECUBITUS ULCER [None]
  - DIABETIC NEPHROPATHY [None]
  - FALL [None]
  - RENAL IMPAIRMENT [None]
